FAERS Safety Report 5678275-0 (Version None)
Quarter: 2008Q1

REPORT INFORMATION
  Report Type: 
  Country: None (occurrence: None)
  Receive Date: 20080319
  Receipt Date: 20080310
  Transmission Date: 20080703
  Serious: Yes (Other)
  Sender: FDA-Public Use
  Company Number: 2008AP000635

PATIENT
  Age: 36 Year
  Sex: Female

DRUGS (8)
  1. PAROXETINE HCL [Suspect]
     Dosage: 60 MG; PO; QD; 25 MG; PO; QD; 45 MG; PO; QD; 10 MG; ORAL_LIQ; PO; QD, 20 MG; TAB; PO; QD
     Route: 048
     Dates: start: 19970801, end: 20030901
  2. PAROXETINE HCL [Suspect]
     Dosage: 60 MG; PO; QD; 25 MG; PO; QD; 45 MG; PO; QD; 10 MG; ORAL_LIQ; PO; QD, 20 MG; TAB; PO; QD
     Route: 048
     Dates: start: 19970801, end: 20030901
  3. PAROXETINE HCL [Suspect]
     Dosage: 60 MG; PO; QD; 25 MG; PO; QD; 45 MG; PO; QD; 10 MG; ORAL_LIQ; PO; QD, 20 MG; TAB; PO; QD
     Route: 048
     Dates: start: 20030901
  4. PAROXETINE HCL [Suspect]
     Dosage: 60 MG; PO; QD; 25 MG; PO; QD; 45 MG; PO; QD; 10 MG; ORAL_LIQ; PO; QD, 20 MG; TAB; PO; QD
     Route: 048
     Dates: start: 20031001
  5. PAROXETINE HCL [Suspect]
     Dosage: 60 MG; PO; QD; 25 MG; PO; QD; 45 MG; PO; QD; 10 MG; ORAL_LIQ; PO; QD, 20 MG; TAB; PO; QD
     Route: 048
     Dates: start: 20031001
  6. PAROXETINE HCL [Suspect]
     Dosage: 60 MG; PO; QD; 25 MG; PO; QD; 45 MG; PO; QD; 10 MG; ORAL_LIQ; PO; QD, 20 MG; TAB; PO; QD
     Route: 048
     Dates: start: 20050407
  7. LORAZEPAM [Concomitant]
  8. FLUOXETINE HCL [Concomitant]

REACTIONS (36)
  - AGGRESSION [None]
  - AGITATION [None]
  - ALTERED VISUAL DEPTH PERCEPTION [None]
  - ANGER [None]
  - CONFUSIONAL STATE [None]
  - CRYING [None]
  - DEPRESSION [None]
  - DIABETES MELLITUS INADEQUATE CONTROL [None]
  - DIARRHOEA [None]
  - DISEASE RECURRENCE [None]
  - DIZZINESS [None]
  - EMOTIONAL DISTRESS [None]
  - FATIGUE [None]
  - FLAT AFFECT [None]
  - HEADACHE [None]
  - HYPERHIDROSIS [None]
  - INFLUENZA [None]
  - INTENTIONAL SELF-INJURY [None]
  - LETHARGY [None]
  - LOSS OF LIBIDO [None]
  - MEMORY IMPAIRMENT [None]
  - MOOD SWINGS [None]
  - NAUSEA [None]
  - NIGHTMARE [None]
  - OVERDOSE [None]
  - PALPITATIONS [None]
  - PANIC REACTION [None]
  - PARAESTHESIA [None]
  - PARANOIA [None]
  - PERSONALITY CHANGE [None]
  - PRURITUS [None]
  - SLEEP DISORDER [None]
  - SUICIDAL IDEATION [None]
  - TREMOR [None]
  - VISUAL DISTURBANCE [None]
  - WITHDRAWAL SYNDROME [None]
